FAERS Safety Report 6480849-4 (Version None)
Quarter: 2009Q4

REPORT INFORMATION
  Report Type: 
  Country: None (occurrence: None)
  Receive Date: 20091203
  Receipt Date: 20091118
  Transmission Date: 20100525
  Serious: No
  Sender: FDA-Public Use
  Company Number: 2009029191

PATIENT
  Age: 49 Year
  Sex: Female
  Weight: 58.0604 kg

DRUGS (16)
  1. FENTORA [Suspect]
     Indication: BACK PAIN
     Dosage: 2400 MCG (800 MCG, 1 IN 8 HR),BU; 1200 MCG (400 MCG, 1 IN 8 HR),BU; 1800 MCG (600 MCG, 1 IN 8 HR),BU
     Route: 002
     Dates: start: 20070101, end: 20070101
  2. FENTORA [Suspect]
     Indication: OSTEOARTHRITIS
     Dosage: 2400 MCG (800 MCG, 1 IN 8 HR),BU; 1200 MCG (400 MCG, 1 IN 8 HR),BU; 1800 MCG (600 MCG, 1 IN 8 HR),BU
     Route: 002
     Dates: start: 20070101, end: 20070101
  3. FENTORA [Suspect]
     Indication: BACK PAIN
     Dosage: 2400 MCG (800 MCG, 1 IN 8 HR),BU; 1200 MCG (400 MCG, 1 IN 8 HR),BU; 1800 MCG (600 MCG, 1 IN 8 HR),BU
     Route: 002
     Dates: start: 20081101, end: 20091112
  4. FENTORA [Suspect]
     Indication: OSTEOARTHRITIS
     Dosage: 2400 MCG (800 MCG, 1 IN 8 HR),BU; 1200 MCG (400 MCG, 1 IN 8 HR),BU; 1800 MCG (600 MCG, 1 IN 8 HR),BU
     Route: 002
     Dates: start: 20081101, end: 20091112
  5. FENTORA [Suspect]
     Indication: BACK PAIN
     Dosage: 2400 MCG (800 MCG, 1 IN 8 HR),BU; 1200 MCG (400 MCG, 1 IN 8 HR),BU; 1800 MCG (600 MCG, 1 IN 8 HR),BU
     Route: 002
     Dates: start: 20091112
  6. FENTORA [Suspect]
     Indication: OSTEOARTHRITIS
     Dosage: 2400 MCG (800 MCG, 1 IN 8 HR),BU; 1200 MCG (400 MCG, 1 IN 8 HR),BU; 1800 MCG (600 MCG, 1 IN 8 HR),BU
     Route: 002
     Dates: start: 20091112
  7. FENTANYL (FENTANYL CITRATE) (POULTICE OR PATCH) [Concomitant]
  8. AVINZA (MORPHINE SULFATE) (TABLETS) [Concomitant]
  9. LNDERAL (PROPRANOLOL) [Concomitant]
  10. CREATOR (ROSUVASTATIN) [Concomitant]
  11. VENLAFAXINE ER (VENLAFAXINE) [Concomitant]
  12. DILTIAZEM CD (DILTIAZEM HYDROCHLORIDE) [Concomitant]
  13. PREVACID [Concomitant]
  14. GABAPENTIN [Concomitant]
  15. VOLTAREN [Concomitant]
  16. ROZEREM [Concomitant]

REACTIONS (6)
  - CIRCUMSTANCE OR INFORMATION CAPABLE OF LEADING TO MEDICATION ERROR [None]
  - DRUG EFFECT DECREASED [None]
  - DRUG PRESCRIBING ERROR [None]
  - LACERATION [None]
  - LIMB INJURY [None]
  - SOMNOLENCE [None]
